FAERS Safety Report 5334727-4 (Version None)
Quarter: 2007Q2

REPORT INFORMATION
  Report Type: 
  Country: None (occurrence: None)
  Receive Date: 20070525
  Receipt Date: 20070524
  Transmission Date: 20071010
  Serious: Yes (Hospitalization, Other)
  Sender: FDA-Public Use
  Company Number: US-JNJFOC-20070503942

PATIENT
  Sex: Female

DRUGS (8)
  1. TOPAMAX [Suspect]
     Indication: DRUG THERAPY
  2. PROVIGIL [Suspect]
     Indication: NARCOLEPSY
     Route: 065
  3. SYNTHROID [Concomitant]
  4. LIPITOR [Concomitant]
     Route: 065
  5. RELPAX [Concomitant]
     Route: 065
  6. KLOR-CON [Concomitant]
     Route: 065
  7. MAGOXIDE [Concomitant]
     Route: 065
  8. MULTI-VITAMIN [Concomitant]
     Route: 065

REACTIONS (2)
  - BLOOD POTASSIUM DECREASED [None]
  - WEIGHT DECREASED [None]
